APPROVED DRUG PRODUCT: NEOMYCIN SULFATE, POLYMYXIN B SULFATE & HYDROCORTISONE
Active Ingredient: HYDROCORTISONE; NEOMYCIN SULFATE; POLYMYXIN B SULFATE
Strength: 1%;EQ 3.5MG BASE/ML;10,000 UNITS/ML
Dosage Form/Route: SUSPENSION/DROPS;OTIC
Application: A062617 | Product #001
Applicant: PHARMAFAIR INC
Approved: Sep 18, 1985 | RLD: No | RS: No | Type: DISCN